FAERS Safety Report 9753251 (Version 2)
Quarter: 2013Q4

REPORT INFORMATION
  Report Type: Spontaneous
  Country: US (occurrence: US)
  Receive Date: 20131213
  Receipt Date: 20131213
  Transmission Date: 20140711
  Serious: No
  Sender: FDA-Public Use
  Company Number: US-GILEAD-2010-0027627

PATIENT
  Sex: Female
  Weight: 30.84 kg

DRUGS (13)
  1. LETAIRIS [Suspect]
     Indication: PULMONARY ARTERIAL HYPERTENSION
     Route: 048
     Dates: start: 20100127, end: 20100227
  2. REVATIO [Concomitant]
  3. OXYGEN [Concomitant]
  4. PLAVIX [Concomitant]
  5. LASIX [Concomitant]
  6. NORVASC [Concomitant]
  7. ZOCOR [Concomitant]
  8. THEOPHYLLINE [Concomitant]
  9. IPRATROPIUM BR [Concomitant]
  10. ALBUTEROL [Concomitant]
  11. ELAVIL [Concomitant]
  12. PEPCID [Concomitant]
  13. KLOR-CON [Concomitant]

REACTIONS (3)
  - Local swelling [Unknown]
  - Dyspnoea [Unknown]
  - Constipation [Unknown]
